FAERS Safety Report 9065944 (Version 1)
Quarter: 2013Q1

REPORT INFORMATION
  Report Type: Report from Study
  Country: US (occurrence: US)
  Receive Date: 20130130
  Receipt Date: 20130130
  Transmission Date: 20140127
  Serious: No
  Sender: FDA-Public Use
  Company Number: US-ABBOTT-12P-163-0977951-00

PATIENT
  Age: 62 None
  Sex: Female

DRUGS (4)
  1. HUMIRA [Suspect]
     Dates: start: 2007
  2. HUMIRA [Suspect]
     Dates: end: 2012
  3. HUMIRA [Suspect]
     Dates: start: 201208
  4. ARAVA [Suspect]
     Indication: RHEUMATOID ARTHRITIS
     Dates: start: 201206

REACTIONS (8)
  - Hyperkeratosis [Not Recovered/Not Resolved]
  - Skin disorder [Not Recovered/Not Resolved]
  - Pain of skin [Not Recovered/Not Resolved]
  - Pruritus [Not Recovered/Not Resolved]
  - Arthralgia [Not Recovered/Not Resolved]
  - Drug ineffective [Not Recovered/Not Resolved]
  - Bone pain [Not Recovered/Not Resolved]
  - Eczema [Not Recovered/Not Resolved]
